FAERS Safety Report 9110101 (Version 1)
Quarter: 2013Q1

REPORT INFORMATION
  Report Type: Spontaneous
  Country: ES (occurrence: ES)
  Receive Date: 20130222
  Receipt Date: 20130222
  Transmission Date: 20140127
  Serious: Yes (Other)
  Sender: FDA-Public Use
  Company Number: PHHY2013ES017170

PATIENT
  Age: 63 Year
  Sex: Male

DRUGS (1)
  1. FLUOROURACILO FERRER FARMA [Suspect]

REACTIONS (1)
  - Toxic skin eruption [Unknown]
